FAERS Safety Report 11937739 (Version 3)
Quarter: 2016Q2

REPORT INFORMATION
  Report Type: Spontaneous
  Country: US (occurrence: US)
  Receive Date: 20160122
  Receipt Date: 20160401
  Transmission Date: 20160815
  Serious: Yes (Other)
  Sender: FDA-Public Use
  Company Number: US-UCBSA-2016001973

PATIENT
  Age: 35 Year
  Sex: Female
  Weight: 54 kg

DRUGS (6)
  1. PANTOPRAZOLE [Concomitant]
     Active Substance: PANTOPRAZOLE SODIUM
     Indication: CROHN^S DISEASE
     Dosage: 40 MG, ONCE DAILY (QD)
  2. CIMZIA [Suspect]
     Active Substance: CERTOLIZUMAB PEGOL
     Indication: CROHN^S DISEASE
     Dosage: 400 MG, MONTHLY (QM)
     Dates: start: 20140915, end: 20151114
  3. AUGMENTINE [Concomitant]
     Active Substance: AMOXICILLIN\CLAVULANATE POTASSIUM
     Indication: PHARYNGEAL OEDEMA
  4. PREDNISONE. [Concomitant]
     Active Substance: PREDNISONE
     Indication: CROHN^S DISEASE
     Dosage: UNK
  5. PENICILLINE [Concomitant]
     Active Substance: PENICILLIN
     Indication: PHARYNGEAL OEDEMA
  6. MULTIVITAMINS [Concomitant]
     Active Substance: VITAMINS
     Indication: PRODUCT USED FOR UNKNOWN INDICATION
     Dosage: UNK, ONCE DAILY (QD)
     Route: 048

REACTIONS (5)
  - Neck pain [Unknown]
  - Upper respiratory tract infection [Recovered/Resolved]
  - Lymphadenopathy [Recovered/Resolved]
  - Abdominal pain upper [Unknown]
  - Pharyngeal oedema [Recovered/Resolved]

NARRATIVE: CASE EVENT DATE: 20151114
